FAERS Safety Report 10142576 (Version 2)
Quarter: 2014Q3

REPORT INFORMATION
  Report Type: Spontaneous
  Country: US (occurrence: US)
  Receive Date: 20140430
  Receipt Date: 20140723
  Transmission Date: 20150326
  Serious: Yes (Other)
  Sender: FDA-Public Use
  Company Number: US-UCBSA-119115

PATIENT
  Sex: Male
  Weight: 73.9 kg

DRUGS (3)
  1. BETASERON [Concomitant]
     Active Substance: INTERFERON BETA-1B
     Indication: MULTIPLE SCLEROSIS
     Dosage: 0.3 MG, EV 2 DAYS (QOD)
  2. KEPPRA XR [Suspect]
     Active Substance: LEVETIRACETAM
     Indication: CONVULSION
     Dosage: 500MG 4 TABLETS DAILY
     Dates: start: 2009
  3. SULFAMETHOXAZOL [Concomitant]
     Active Substance: SULFAMETHOXAZOLE
     Indication: IMMUNE SYSTEM DISORDER
     Dosage: 2 PILLS, DAIILY
     Dates: start: 200410

REACTIONS (1)
  - Secondary progressive multiple sclerosis [Not Recovered/Not Resolved]
